FAERS Safety Report 10570139 (Version 1)
Quarter: 2014Q4

REPORT INFORMATION
  Report Type: Spontaneous
  Country: US (occurrence: None)
  Receive Date: 20141106
  Receipt Date: 20141106
  Transmission Date: 20150529
  Serious: Yes (Hospitalization)
  Sender: FDA-Public Use
  Company Number: None

PATIENT
  Age: 79 Year
  Sex: Female
  Weight: 55.34 kg

DRUGS (1)
  1. TOVIAZ [Suspect]
     Active Substance: FESOTERODINE FUMARATE
     Indication: POLLAKIURIA
     Dosage: 4 MGM, 1 TABLET, ORAL - H.S.
     Route: 048
     Dates: start: 20140926, end: 20140926

REACTIONS (1)
  - Urinary retention [None]

NARRATIVE: CASE EVENT DATE: 20140926
